FAERS Safety Report 16664385 (Version 4)
Quarter: 2020Q3

REPORT INFORMATION
  Report Type: Spontaneous
  Country: US (occurrence: US)
  Receive Date: 20190802
  Receipt Date: 20200813
  Transmission Date: 20201102
  Serious: No
  Sender: FDA-Public Use
  Company Number: US-ACTELION-A-US2019-193895

PATIENT
  Age: 40 Year
  Sex: Female
  Weight: 58.05 kg

DRUGS (5)
  1. REMODULIN [Suspect]
     Active Substance: TREPROSTINIL
     Indication: PULMONARY ARTERIAL HYPERTENSION
     Dosage: 10 MG/ML, PER MIN
     Route: 058
     Dates: start: 20181025
  2. REMODULIN [Suspect]
     Active Substance: TREPROSTINIL
     Dosage: 0.05 MG/KG
     Route: 058
  3. OPSUMIT [Suspect]
     Active Substance: MACITENTAN
     Indication: PRODUCT USED FOR UNKNOWN INDICATION
     Route: 048
  4. XARELTO [Suspect]
     Active Substance: RIVAROXABAN
     Indication: PRODUCT USED FOR UNKNOWN INDICATION
     Route: 048
  5. SILDENAFIL. [Concomitant]
     Active Substance: SILDENAFIL

REACTIONS (17)
  - Infusion site nodule [Unknown]
  - Infusion site swelling [Unknown]
  - Infusion site pruritus [Recovered/Resolved]
  - Infusion site rash [Recovering/Resolving]
  - Incorrect dose administered [Unknown]
  - Injection site infection [Unknown]
  - Infusion site haemorrhage [Unknown]
  - Blood blister [Unknown]
  - Infusion site warmth [Unknown]
  - Infusion site pain [Unknown]
  - Catheter site swelling [Unknown]
  - Infusion site erythema [Recovered/Resolved]
  - Dizziness [Recovered/Resolved]
  - Infusion site discolouration [Unknown]
  - Diarrhoea [Recovered/Resolved]
  - Infusion site extravasation [Recovered/Resolved]
  - Headache [Recovered/Resolved]

NARRATIVE: CASE EVENT DATE: 20200508
